FAERS Safety Report 8170392-9 (Version None)
Quarter: 2012Q1

REPORT INFORMATION
  Report Type: 
  Country: None (occurrence: None)
  Receive Date: 20120228
  Receipt Date: 20120214
  Transmission Date: 20120608
  Serious: No
  Sender: FDA-Public Use
  Company Number: US-ELI_LILLY_AND_COMPANY-US200910007339

PATIENT
  Sex: Male

DRUGS (6)
  1. SYNTHROID [Concomitant]
  2. ZYPREXA [Suspect]
     Dosage: 5 MG, UNK
  3. SEROQUEL [Concomitant]
  4. ZYPREXA [Suspect]
     Dosage: 10 MG, UNK
  5. ZYPREXA [Suspect]
     Dosage: 15 MG, UNK
     Dates: start: 20020502
  6. VALPROIC ACID [Concomitant]

REACTIONS (8)
  - MITRAL VALVE INCOMPETENCE [None]
  - DIABETES MELLITUS [None]
  - GASTROINTESTINAL HAEMORRHAGE [None]
  - PANCYTOPENIA [None]
  - HIGH DENSITY LIPOPROTEIN DECREASED [None]
  - LEFT VENTRICULAR HYPERTROPHY [None]
  - TRICUSPID VALVE INCOMPETENCE [None]
  - OEDEMA PERIPHERAL [None]
